FAERS Safety Report 10061625 (Version 1)
Quarter: 2014Q2

REPORT INFORMATION
  Report Type: Spontaneous
  Country: US (occurrence: None)
  Receive Date: 20140403
  Receipt Date: 20140403
  Transmission Date: 20141212
  Serious: Yes (Hospitalization)
  Sender: FDA-Public Use
  Company Number: 2014ZX000068

PATIENT
  Age: 56 Year
  Sex: Female
  Weight: 83.46 kg

DRUGS (7)
  1. SUMAVEL DOSEPRO [Suspect]
     Indication: MIGRAINE
     Route: 058
  2. PREDNISONE (PREDNISONE) [Concomitant]
  3. IMURAN (AZATHIOPRINE) [Concomitant]
  4. SYNTHROID (LEVOTHYROXINE SODIUM) [Concomitant]
  5. PREVACID (LANSOPRAZOLE) [Concomitant]
  6. FOLIC ACID (FOLIC ACID) [Concomitant]
  7. PRILOCARPINE [Concomitant]

REACTIONS (3)
  - Upper respiratory tract infection [None]
  - Injection site pain [None]
  - Drug effect incomplete [None]
